FAERS Safety Report 5446018-1 (Version None)
Quarter: 2007Q3

REPORT INFORMATION
  Report Type: 
  Country: None (occurrence: None)
  Receive Date: 20070907
  Receipt Date: 20070905
  Transmission Date: 20080115
  Serious: Yes (Death, Life-Threatening, Other)
  Sender: FDA-Public Use
  Company Number: GB-JNJFOC-20070505295

PATIENT
  Age: 78 Year
  Sex: Female
  Weight: 82 kg

DRUGS (13)
  1. REMICADE [Suspect]
     Indication: PSORIATIC ARTHROPATHY
     Route: 042
  2. AMLODIPINE [Concomitant]
  3. ATENOLOL [Concomitant]
  4. CYANOCOBALAMIN [Concomitant]
  5. DOMPERIDONE [Concomitant]
  6. FOLIC ACID [Concomitant]
  7. FRUMIL [Concomitant]
  8. METHOTREXATE [Concomitant]
  9. RANITIDINE [Concomitant]
  10. TRAMADOL HCL [Concomitant]
  11. VITAMIN CAP [Concomitant]
  12. NOVOLIN 50/50 [Concomitant]
  13. INSULIN [Concomitant]

REACTIONS (4)
  - ANGIOPATHY [None]
  - CARDIAC FAILURE [None]
  - MYOCARDIAL INFARCTION [None]
  - TYPE 2 DIABETES MELLITUS [None]
